FAERS Safety Report 8157813-2 (Version None)
Quarter: 2012Q1

REPORT INFORMATION
  Report Type: 
  Country: None (occurrence: None)
  Receive Date: 20120222
  Receipt Date: 20120213
  Transmission Date: 20120608
  Serious: No
  Sender: FDA-Public Use
  Company Number: US-B.I. PHARMACEUTICALS,INC./RIDGEFIELD-2012-BP-02793BP

PATIENT
  Sex: Female

DRUGS (8)
  1. WELLBUTRIN [Concomitant]
     Indication: DEPRESSION
  2. KLONOPIN [Concomitant]
     Indication: RESTLESS LEGS SYNDROME
  3. NEURONTIN [Concomitant]
  4. NEXIUM [Concomitant]
     Indication: GASTROOESOPHAGEAL REFLUX DISEASE
  5. CALCIUM [Concomitant]
  6. AGGRENOX [Suspect]
     Indication: CEREBROVASCULAR ACCIDENT PROPHYLAXIS
     Route: 048
     Dates: start: 20010101
  7. NORVASC [Concomitant]
     Indication: HYPERTENSION
  8. ZOCOR [Concomitant]
     Indication: CEREBROVASCULAR ACCIDENT

REACTIONS (2)
  - CONTUSION [None]
  - LACERATION [None]
